FAERS Safety Report 7552914-1 (Version None)
Quarter: 2011Q2

REPORT INFORMATION
  Report Type: 
  Country: None (occurrence: None)
  Receive Date: 20110616
  Receipt Date: 20110309
  Transmission Date: 20111010
  Serious: Yes (Other)
  Sender: FDA-Public Use
  Company Number: US-ASTRAZENECA-2011SE13216

PATIENT
  Age: 62 Year
  Sex: Female

DRUGS (3)
  1. FASLODEX [Suspect]
     Route: 030
     Dates: start: 20100101, end: 20110101
  2. FASLODEX [Suspect]
     Route: 030
     Dates: start: 20110101
  3. FASLODEX [Suspect]
     Indication: NEOPLASM MALIGNANT
     Route: 030
     Dates: end: 20100101

REACTIONS (2)
  - RASH GENERALISED [None]
  - URTICARIA [None]
